FAERS Safety Report 20360122 (Version 1)
Quarter: 2022Q1

REPORT INFORMATION
  Report Type: Spontaneous
  Country: IT (occurrence: IT)
  Receive Date: 20220121
  Receipt Date: 20220121
  Transmission Date: 20220423
  Serious: Yes (Hospitalization)
  Sender: FDA-Public Use
  Company Number: None

PATIENT
  Age: 71 Year
  Sex: Male
  Weight: 65 kg

DRUGS (1)
  1. HALDOL [Suspect]
     Active Substance: HALOPERIDOL
     Indication: Psychotic disorder
     Route: 048
     Dates: start: 20200201, end: 20211104

REACTIONS (7)
  - Ileus paralytic [Recovered/Resolved with Sequelae]
  - Neuroleptic malignant syndrome [Recovered/Resolved with Sequelae]
  - Blood creatine phosphokinase increased [Recovered/Resolved with Sequelae]
  - Blood lactic acid increased [Recovered/Resolved with Sequelae]
  - Leukocytosis [Recovered/Resolved with Sequelae]
  - Pyrexia [Recovered/Resolved with Sequelae]
  - Muscle rigidity [Recovered/Resolved with Sequelae]

NARRATIVE: CASE EVENT DATE: 20211103
